FAERS Safety Report 19105218 (Version 2)
Quarter: 2021Q4

REPORT INFORMATION
  Report Type: Spontaneous
  Country: JP (occurrence: JP)
  Receive Date: 20210407
  Receipt Date: 20211018
  Transmission Date: 20220303
  Serious: Yes (Life-Threatening, Other)
  Sender: FDA-Public Use
  Company Number: JP-PFIZER INC-2021356027

PATIENT
  Age: 28 Year
  Sex: Female

DRUGS (3)
  1. INFLIXIMAB [Suspect]
     Active Substance: INFLIXIMAB
     Indication: Crohn^s disease
     Dosage: 5 MG/KG WITH AN 8-WEEK INTERVAL, 11 CYCLE
  2. INFLIXIMAB [Suspect]
     Active Substance: INFLIXIMAB
     Dosage: 10 MG/KG FOLLOWED BY A TOTAL OF 22 CYCLES, 6-WEEK INTERVAL
  3. MERCAPTOPURINE [Concomitant]
     Active Substance: MERCAPTOPURINE
     Indication: Crohn^s disease
     Dosage: 30 MG

REACTIONS (3)
  - Cerebral venous sinus thrombosis [Unknown]
  - Drug ineffective [Unknown]
  - Off label use [Unknown]
